FAERS Safety Report 11119293 (Version 1)
Quarter: 2015Q2

REPORT INFORMATION
  Report Type: Spontaneous
  Country: US (occurrence: US)
  Receive Date: 20150518
  Receipt Date: 20150518
  Transmission Date: 20150821
  Serious: No
  Sender: FDA-Public Use
  Company Number: US-PFIZER INC-2015163593

PATIENT
  Sex: Male

DRUGS (2)
  1. ADVIL [Suspect]
     Active Substance: IBUPROFEN
     Indication: INFLUENZA LIKE ILLNESS
     Dosage: 2 DF, AS NEEDED
     Route: 048
     Dates: start: 20150511
  2. ADVIL [Suspect]
     Active Substance: IBUPROFEN
     Indication: BRONCHITIS

REACTIONS (3)
  - Intentional product misuse [Unknown]
  - Overdose [Not Recovered/Not Resolved]
  - Abdominal pain upper [Not Recovered/Not Resolved]

NARRATIVE: CASE EVENT DATE: 20150511
